FAERS Safety Report 8467894-4 (Version None)
Quarter: 2012Q2

REPORT INFORMATION
  Report Type: 
  Country: None (occurrence: None)
  Receive Date: 20120626
  Receipt Date: 20120619
  Transmission Date: 20120825
  Serious: Yes (Hospitalization)
  Sender: FDA-Public Use
  Company Number: FR-BRISTOL-MYERS SQUIBB COMPANY-16670887

PATIENT
  Age: 52 Year
  Sex: Male

DRUGS (1)
  1. IPILIMUMAB [Suspect]
     Indication: MALIGNANT MELANOMA
     Dosage: 21-21MAY2012,11-11JUN2012
     Route: 042
     Dates: start: 20120521, end: 20120611

REACTIONS (4)
  - BRAIN OEDEMA [None]
  - METASTASES TO CENTRAL NERVOUS SYSTEM [None]
  - HEADACHE [None]
  - NAUSEA [None]
